FAERS Safety Report 22770094 (Version 3)
Quarter: 2023Q4

REPORT INFORMATION
  Report Type: Spontaneous
  Country: US (occurrence: US)
  Receive Date: 20230801
  Receipt Date: 20231227
  Transmission Date: 20240110
  Serious: No
  Sender: FDA-Public Use
  Company Number: US-SA-SAC20230726000217

PATIENT
  Age: 65 Year
  Sex: Female

DRUGS (5)
  1. DUPIXENT [Suspect]
     Active Substance: DUPILUMAB
     Indication: Asthma
     Dosage: 300MG, QOW
     Route: 058
     Dates: start: 20200909
  2. DUPIXENT [Suspect]
     Active Substance: DUPILUMAB
     Indication: Breast cancer
  3. IBRANCE [Concomitant]
     Active Substance: PALBOCICLIB
     Dosage: UNK
  4. IBRANCE [Concomitant]
     Active Substance: PALBOCICLIB
     Dosage: UNK
  5. AMOXICILLIN [Concomitant]
     Active Substance: AMOXICILLIN

REACTIONS (7)
  - Dyspnoea [Not Recovered/Not Resolved]
  - Impaired quality of life [Unknown]
  - Drug ineffective [Not Recovered/Not Resolved]
  - Illness [Unknown]
  - Asthma [Not Recovered/Not Resolved]
  - Product dose omission in error [Unknown]
  - Product use in unapproved indication [Unknown]

NARRATIVE: CASE EVENT DATE: 20200909
